FAERS Safety Report 9882694 (Version 1)
Quarter: 2014Q1

REPORT INFORMATION
  Report Type: Spontaneous
  Country: US (occurrence: US)
  Receive Date: 20140207
  Receipt Date: 20140207
  Transmission Date: 20141002
  Serious: Yes (Other)
  Sender: FDA-Public Use
  Company Number: PHHY2014US013400

PATIENT
  Age: 20 Year
  Sex: Female

DRUGS (15)
  1. METHYLPREDNISOLONE [Suspect]
     Indication: SYSTEMIC LUPUS ERYTHEMATOSUS
     Dosage: 500 MG, BID
     Route: 042
  2. CHLOROQUINE HYDROCHLORIDE [Concomitant]
  3. ACETAMINOPHEN [Concomitant]
  4. HYDROCODONE [Concomitant]
  5. MESNA [Concomitant]
  6. TRIMETHOPRIM SULFAMETHOXAZOLE [Concomitant]
  7. SILDENAFIL [Concomitant]
  8. PANTOPRAZOLE [Concomitant]
  9. ONDANSETRON [Concomitant]
  10. MYCOPHENOLATE MOFETIL [Concomitant]
  11. LEUPROLIDE ACE [Concomitant]
  12. FOLIC ACID [Concomitant]
  13. DIPHENHYDRAMINE [Concomitant]
  14. CYCLOPHOSPHAMIDE [Concomitant]
  15. CALCIUM CARBONATE [Concomitant]

REACTIONS (2)
  - Bradyarrhythmia [Recovered/Resolved]
  - Sinus bradycardia [Recovered/Resolved]
